FAERS Safety Report 10774723 (Version 2)
Quarter: 2016Q1

REPORT INFORMATION
  Report Type: Other
  Country: US (occurrence: US)
  Receive Date: 20150209
  Receipt Date: 20160219
  Transmission Date: 20160525
  Serious: Yes (Other)
  Sender: FDA-Public Use
  Company Number: US-ACORDA-ACO_108511_2015

PATIENT
  Age: 61 Year
  Sex: Female
  Weight: 68.27 kg

DRUGS (3)
  1. TYSABRI [Concomitant]
     Active Substance: NATALIZUMAB
     Indication: PRODUCT USED FOR UNKNOWN INDICATION
     Dosage: UNK, MONTHLY
  2. ALLERGY [Concomitant]
     Active Substance: UNSPECIFIED INGREDIENT
     Indication: PRODUCT USED FOR UNKNOWN INDICATION
     Dosage: UNK
  3. AMPYRA [Suspect]
     Active Substance: DALFAMPRIDINE
     Indication: MULTIPLE SCLEROSIS
     Dosage: 10 MG, BID
     Route: 048

REACTIONS (10)
  - Dysstasia [Unknown]
  - Fall [Recovered/Resolved]
  - Dysstasia [Recovered/Resolved]
  - Therapy cessation [Unknown]
  - Hemiparesis [Unknown]
  - Dysgraphia [Unknown]
  - Asthenia [Recovered/Resolved]
  - Therapy cessation [Recovered/Resolved]
  - Abasia [Unknown]
  - Hand deformity [Unknown]

NARRATIVE: CASE EVENT DATE: 201406
